FAERS Safety Report 7897045-6 (Version None)
Quarter: 2011Q4

REPORT INFORMATION
  Report Type: 
  Country: None (occurrence: None)
  Receive Date: 20111107
  Receipt Date: 20111017
  Transmission Date: 20120403
  Serious: Yes (Hospitalization)
  Sender: FDA-Public Use
  Company Number: CA-JNJFOC-20111009855

PATIENT
  Sex: Female
  Weight: 56.8 kg

DRUGS (1)
  1. REMICADE [Suspect]
     Indication: COLITIS ULCERATIVE
     Route: 042
     Dates: start: 20101007

REACTIONS (3)
  - GASTROINTESTINAL PERFORATION [None]
  - FATIGUE [None]
  - FREQUENT BOWEL MOVEMENTS [None]
